FAERS Safety Report 7802248-2 (Version None)
Quarter: 2011Q4

REPORT INFORMATION
  Report Type: 
  Country: None (occurrence: None)
  Receive Date: 20111007
  Receipt Date: 20110929
  Transmission Date: 20120403
  Serious: No
  Sender: FDA-Public Use
  Company Number: US-PURDUE-USA-2010-0048602

PATIENT
  Sex: Female

DRUGS (3)
  1. OXYCONTIN [Suspect]
     Indication: PAIN
     Dosage: 80 MG, Q8H
  2. LEXAPRO [Suspect]
     Indication: DEPRESSION
     Dosage: 10 MG, UNK
     Route: 048
     Dates: start: 20110603, end: 20110613
  3. ZOLOFT [Suspect]
     Indication: DEPRESSION
     Dosage: 100 MG, UNK
     Route: 048
     Dates: start: 20110613, end: 20110720

REACTIONS (4)
  - ANXIETY [None]
  - PRODUCT FORMULATION ISSUE [None]
  - ENERGY INCREASED [None]
  - INADEQUATE ANALGESIA [None]
